FAERS Safety Report 4280395-2 (Version None)
Quarter: 2004Q1

REPORT INFORMATION
  Report Type: 
  Country: None (occurrence: None)
  Receive Date: 20040126
  Receipt Date: 20040109
  Transmission Date: 20041129
  Serious: Yes (Hospitalization)
  Sender: FDA-Public Use
  Company Number: 176634

PATIENT
  Sex: Female

DRUGS (2)
  1. AVONEX [Suspect]
     Indication: MULTIPLE SCLEROSIS
  2. PARACETAMOL [Concomitant]

REACTIONS (3)
  - BACK PAIN [None]
  - DIFFICULTY IN WALKING [None]
  - PAIN IN EXTREMITY [None]
